FAERS Safety Report 12485097 (Version 2)
Quarter: 2016Q3

REPORT INFORMATION
  Report Type: Spontaneous
  Country: US (occurrence: US)
  Receive Date: 20160621
  Receipt Date: 20160804
  Transmission Date: 20161109
  Serious: Yes (Other)
  Sender: FDA-Public Use
  Company Number: US-PFIZER INC-2016305871

PATIENT
  Age: 37 Year
  Sex: Female
  Weight: 73 kg

DRUGS (4)
  1. METFORMIN [Concomitant]
     Active Substance: METFORMIN HYDROCHLORIDE
     Indication: DIABETES MELLITUS
     Dosage: 850 MG, 3X/DAY
     Dates: start: 201403
  2. DEPO-PROVERA [Suspect]
     Active Substance: MEDROXYPROGESTERONE ACETATE
     Indication: CONTRACEPTION
     Dosage: 150 MG, UNK
     Dates: start: 2013, end: 20160317
  3. LISINOPRIL. [Concomitant]
     Active Substance: LISINOPRIL
     Indication: RENAL DISORDER
     Dosage: 10 MG, DAILY
     Dates: start: 201511, end: 20160616
  4. LEVOTHYROXINE. [Concomitant]
     Active Substance: LEVOTHYROXINE
     Indication: THYROID DISORDER
     Dosage: 10 UG, 1X/DAY
     Dates: start: 201511

REACTIONS (3)
  - Drug ineffective [Unknown]
  - Amenorrhoea [Unknown]
  - Unintended pregnancy [Unknown]
